FAERS Safety Report 5904261-9 (Version None)
Quarter: 2008Q3

REPORT INFORMATION
  Report Type: 
  Country: None (occurrence: None)
  Receive Date: 20080909
  Receipt Date: 20080325
  Transmission Date: 20090109
  Serious: Yes (Hospitalization)
  Sender: FDA-Public Use
  Company Number: 163-20785-08031557

PATIENT
  Age: 47 Year
  Sex: Female
  Weight: 69.3 kg

DRUGS (21)
  1. THALOMID [Suspect]
     Indication: MULTIPLE MYELOMA
     Dosage: 200 MG, ORAL ; 50 MG, QOD, ORAL
     Route: 048
     Dates: end: 20080213
  2. THALOMID [Suspect]
     Indication: MULTIPLE MYELOMA
     Dosage: 200 MG, ORAL ; 50 MG, QOD, ORAL
     Route: 048
     Dates: start: 20051027
  3. VELCADE [Suspect]
     Indication: MULTIPLE MYELOMA
     Dosage: 1 MG/M2 ; 0.8 MG/M2
     Dates: end: 20080228
  4. VELCADE [Suspect]
     Indication: MULTIPLE MYELOMA
     Dosage: 1 MG/M2 ; 0.8 MG/M2
     Dates: start: 20051024
  5. DEXAMETHASONE TAB [Suspect]
     Indication: MULTIPLE MYELOMA
     Dates: end: 20070502
  6. DEXAMETHASONE TAB [Suspect]
     Indication: MULTIPLE MYELOMA
     Dates: start: 20051027
  7. TOPROL XL (METOPROLOL SUCCINATE) (TABLETS) [Concomitant]
  8. FOLIC ACID (FOLIC ACID) (TABLETS) [Concomitant]
  9. ZOMETA [Concomitant]
  10. ATIVAN [Concomitant]
  11. PROCRIT (ERYTHROPOIETIN) (SOLUTION) [Concomitant]
  12. SYNTHROID (LEVOTHYROXINE SODIUM) (TABLETS) [Concomitant]
  13. LIDODERM (LIDOCAINE) (5 PERCENT, POULTICE OR PATCH) [Concomitant]
  14. LYRICA (PREGABALIN) (CAPSULES) [Concomitant]
  15. DURAGESIC (FENTANYL) (POULTICE OR PATCH) [Concomitant]
  16. VITAMIN D (ERGOCALCIFEROL) (CAPSULES) [Concomitant]
  17. CYMBALTA [Concomitant]
  18. ELAVIL [Concomitant]
  19. VITAMIN B COMPLEX (B-KOMPLEX ^LECIVA^) (TABLETS) [Concomitant]
  20. WELLBUTRIN [Concomitant]
  21. LUNESTA (ESZOPICLONE) (TABLETS) [Concomitant]

REACTIONS (1)
  - BRONCHOPNEUMONIA [None]
